FAERS Safety Report 11415807 (Version 1)
Quarter: 2015Q3

REPORT INFORMATION
  Report Type: Spontaneous
  Country: US (occurrence: None)
  Receive Date: 20150824
  Receipt Date: 20150824
  Transmission Date: 20151125
  Serious: Yes (Hospitalization, Other)
  Sender: FDA-Public Use
  Company Number: None

PATIENT
  Age: 7 Month
  Sex: Female
  Weight: 7.26 kg

DRUGS (3)
  1. BABY TEETHING [Suspect]
     Active Substance: ATROPA BELLADONNA\CALCIUM PHOSPHATE\CHAMOMILE\COFFEA ARABICA FRUIT
     Indication: FEELING ABNORMAL
     Dosage: 2 PILLS
     Route: 048
     Dates: start: 20150810, end: 20150815
  2. BABY TEETHING [Suspect]
     Active Substance: ATROPA BELLADONNA\CALCIUM PHOSPHATE\CHAMOMILE\COFFEA ARABICA FRUIT
     Indication: INSOMNIA
     Dosage: 2 PILLS
     Route: 048
     Dates: start: 20150810, end: 20150815
  3. BABY TEETHING [Suspect]
     Active Substance: ATROPA BELLADONNA\CALCIUM PHOSPHATE\CHAMOMILE\COFFEA ARABICA FRUIT
     Indication: TEETHING
     Dosage: 2 PILLS
     Route: 048
     Dates: start: 20150810, end: 20150815

REACTIONS (3)
  - Dyskinesia [None]
  - Musculoskeletal disorder [None]
  - Muscle spasms [None]

NARRATIVE: CASE EVENT DATE: 20150813
